FAERS Safety Report 8463539 (Version 2)
Quarter: 2012Q4

REPORT INFORMATION
  Report Type: 
  Country: US (occurrence: US)
  Receive Date: 20120316
  Receipt Date: 20120912
  Transmission Date: 20130627
  Serious: Yes (Hospitalization)
  Sender: FDA-Public Use
  Company Number: US-BAYER-2012-023866

PATIENT
  Age: 24 Year
  Sex: Female
  Weight: 68.03 kg

DRUGS (1)
  1. YAZ [Suspect]
     Indication: ACNE
     Dosage: UNK
     Dates: start: 2002, end: 2006

REACTIONS (1)
  - Cholelithiasis [None]
